FAERS Safety Report 26192841 (Version 2)
Quarter: 2025Q4

REPORT INFORMATION
  Report Type: Spontaneous
  Country: US (occurrence: US)
  Receive Date: 20251223
  Receipt Date: 20251231
  Transmission Date: 20260119
  Serious: No
  Sender: MERCK KGAA
  Company Number: US-Merck Healthcare KGaA-2025065000

PATIENT
  Sex: Female

DRUGS (1)
  1. REBIF [Suspect]
     Active Substance: INTERFERON BETA-1A
     Indication: Multiple sclerosis
     Dates: start: 202311

REACTIONS (2)
  - Migraine [Unknown]
  - Multiple sclerosis relapse [Unknown]
